FAERS Safety Report 18504332 (Version 1)
Quarter: 2020Q4

REPORT INFORMATION
  Report Type: Spontaneous
  Country: GB (occurrence: GB)
  Receive Date: 20201114
  Receipt Date: 20201114
  Transmission Date: 20210114
  Serious: No
  Sender: FDA-Public Use
  Company Number: GB-ALKEM LABORATORIES LIMITED-GB-ALKEM-2020-05252

PATIENT
  Sex: Female

DRUGS (28)
  1. PREGABALIN. [Suspect]
     Active Substance: PREGABALIN
     Dosage: 100 MILLIGRAM (EVERY ONE DAY)
     Route: 065
  2. DOCUSATE [Concomitant]
     Active Substance: DOCUSATE
     Indication: CONSTIPATION
     Dosage: 200 MILLIGRAM (EVERY ONE DAY)
     Route: 065
     Dates: start: 201805, end: 20191212
  3. ZOPICLONE [Concomitant]
     Active Substance: ZOPICLONE
     Indication: PRODUCT USED FOR UNKNOWN INDICATION
     Dosage: UNK (EVERY)
     Route: 065
     Dates: start: 201706
  4. PREGABALIN. [Suspect]
     Active Substance: PREGABALIN
     Indication: PRODUCT USED FOR UNKNOWN INDICATION
     Dosage: 50 MILLIGRAM (EVERY ONE DAY)
     Route: 065
  5. CODEINE [Concomitant]
     Active Substance: CODEINE
     Indication: PRODUCT USED FOR UNKNOWN INDICATION
     Dosage: UNK (EVERY)
     Route: 065
     Dates: start: 201805
  6. LANSOPRAZOLE. [Concomitant]
     Active Substance: LANSOPRAZOLE
     Indication: PRODUCT USED FOR UNKNOWN INDICATION
     Dosage: UNK (EVERY)
     Route: 065
     Dates: start: 201907, end: 20190814
  7. MIRTAZAPINE. [Concomitant]
     Active Substance: MIRTAZAPINE
     Indication: PRODUCT USED FOR UNKNOWN INDICATION
     Dosage: UNK (EVERY)
     Route: 065
     Dates: start: 201807
  8. PREDNISOLONE. [Concomitant]
     Active Substance: PREDNISOLONE
     Dosage: 1 UNK (EVERY ONE DAY)
     Route: 065
  9. PREGABALIN. [Suspect]
     Active Substance: PREGABALIN
     Dosage: 200 MILLIGRAM (EVERY ONE DAY)
     Route: 065
  10. PREGABALIN. [Suspect]
     Active Substance: PREGABALIN
     Dosage: 25 MG, 2X/DAY (EVERY ONE DAY)
     Route: 065
     Dates: start: 201803
  11. ALENDRONIC ACID [Concomitant]
     Active Substance: ALENDRONIC ACID
     Indication: PRODUCT USED FOR UNKNOWN INDICATION
     Dosage: UNK (EVERY)
     Route: 065
     Dates: start: 201901
  12. PREDNISOLONE. [Concomitant]
     Active Substance: PREDNISOLONE
     Dosage: UNK (EVERY)
     Route: 065
     Dates: start: 201806
  13. GABAPENTIN. [Concomitant]
     Active Substance: GABAPENTIN
     Indication: PRODUCT USED FOR UNKNOWN INDICATION
     Dosage: 3 UNK (EVERY ONE DAY)
     Route: 065
     Dates: start: 201710
  14. PREDNISOLONE. [Concomitant]
     Active Substance: PREDNISOLONE
     Dosage: UNK (EVERY)
     Route: 065
  15. APIXABAN [Concomitant]
     Active Substance: APIXABAN
     Indication: CEREBROVASCULAR ACCIDENT PROPHYLAXIS
     Dosage: 5 MILLIGRAM (EVERY ONE DAY)
     Route: 048
     Dates: start: 20170412, end: 2019
  16. OMEPRAZOLE. [Concomitant]
     Active Substance: OMEPRAZOLE
     Indication: PRODUCT USED FOR UNKNOWN INDICATION
     Dosage: UNK (EVERY)
     Route: 065
     Dates: start: 201806
  17. PREDNISOLONE. [Concomitant]
     Active Substance: PREDNISOLONE
     Indication: POLYMYALGIA RHEUMATICA
     Dosage: 2 UNK (EVERY ONE DAY)
     Route: 065
     Dates: start: 201806, end: 20191218
  18. PREDNISOLONE. [Concomitant]
     Active Substance: PREDNISOLONE
     Dosage: UNK (EVERY ONE DAY)
     Route: 065
  19. CARBOMER [Concomitant]
     Active Substance: CARBOMER
     Indication: EYE DISORDER
     Dosage: 4 UNK (EVERY ONE DAY)
     Route: 065
     Dates: start: 201506, end: 20191212
  20. GABAPENTIN. [Concomitant]
     Active Substance: GABAPENTIN
     Dosage: UNK (EVERY)
     Route: 065
  21. AMITRIPTYLINE [Concomitant]
     Active Substance: AMITRIPTYLINE
     Indication: PRODUCT USED FOR UNKNOWN INDICATION
     Dosage: 1 UNK (EVERY ONE DAY)
     Route: 065
  22. ACCRETE D3 [Concomitant]
     Active Substance: CALCIUM CARBONATE\CHOLECALCIFEROL
     Indication: PRODUCT USED FOR UNKNOWN INDICATION
     Dosage: 2 UNK (EVERY ONE DAY)
     Route: 065
  23. PIROXICAM. [Concomitant]
     Active Substance: PIROXICAM
     Indication: PRODUCT USED FOR UNKNOWN INDICATION
     Dosage: UNK (EVERY)
     Route: 065
  24. ATORVASTATIN [Concomitant]
     Active Substance: ATORVASTATIN
     Indication: PRODUCT USED FOR UNKNOWN INDICATION
     Dosage: UNK (EVERY)
     Route: 065
  25. BISOPROLOL [Concomitant]
     Active Substance: BISOPROLOL
     Indication: PRODUCT USED FOR UNKNOWN INDICATION
     Dosage: UNK (EVERY)
     Route: 065
     Dates: start: 201702
  26. MELATONIN [Concomitant]
     Active Substance: MELATONIN
     Indication: PRODUCT USED FOR UNKNOWN INDICATION
     Dosage: 1 UNK (EVERY ONE DAY)
     Route: 065
     Dates: start: 201906
  27. SERTRALINE [Concomitant]
     Active Substance: SERTRALINE HYDROCHLORIDE
     Indication: PRODUCT USED FOR UNKNOWN INDICATION
     Dosage: UNK (EVERY)
     Route: 065
     Dates: start: 20170914
  28. TRAMADOL. [Concomitant]
     Active Substance: TRAMADOL
     Indication: PRODUCT USED FOR UNKNOWN INDICATION
     Dosage: UNK (EVERY)
     Route: 065
     Dates: start: 201806

REACTIONS (2)
  - Disorientation [Unknown]
  - Somnolence [Unknown]
